FAERS Safety Report 4778147-X (Version None)
Quarter: 2005Q3

REPORT INFORMATION
  Report Type: 
  Country: None (occurrence: None)
  Receive Date: 20050926
  Receipt Date: 20050920
  Transmission Date: 20060218
  Serious: Yes (Death)
  Sender: FDA-Public Use
  Company Number: 2005AC01454

PATIENT
  Age: 55 Year
  Sex: Male

DRUGS (2)
  1. AMITRIPTYLINE HCL [Suspect]
     Route: 048
  2. INSULIN [Suspect]
     Route: 051

REACTIONS (3)
  - CIRCULATORY COLLAPSE [None]
  - COMPLETED SUICIDE [None]
  - ELECTROCARDIOGRAM QT CORRECTED INTERVAL PROLONGED [None]
